FAERS Safety Report 5423410-2 (Version None)
Quarter: 2007Q3

REPORT INFORMATION
  Report Type: 
  Country: None (occurrence: None)
  Receive Date: 20070823
  Receipt Date: 20070814
  Transmission Date: 20080115
  Serious: Yes (Hospitalization)
  Sender: FDA-Public Use
  Company Number: CA-JNJFOC-20070803142

PATIENT
  Sex: Female
  Weight: 52 kg

DRUGS (8)
  1. REMICADE [Suspect]
     Route: 042
  2. REMICADE [Suspect]
     Indication: CROHN'S DISEASE
     Route: 042
  3. METHOTREXATE [Suspect]
     Indication: DRUG USE FOR UNKNOWN INDICATION
     Route: 030
  4. OSCAL D [Concomitant]
     Route: 048
  5. FLOMAX [Concomitant]
     Route: 048
  6. NEXIUM [Concomitant]
     Route: 048
  7. FOLATE [Concomitant]
     Route: 048
  8. ATIVAN [Concomitant]
     Route: 048

REACTIONS (4)
  - ARTHRALGIA [None]
  - HYPOAESTHESIA [None]
  - LUPUS-LIKE SYNDROME [None]
  - MYALGIA [None]
